FAERS Safety Report 5034653-4 (Version None)
Quarter: 2006Q2

REPORT INFORMATION
  Report Type: 
  Country: None (occurrence: None)
  Receive Date: 20060621
  Receipt Date: 20060608
  Transmission Date: 20061013
  Serious: Yes (Other)
  Sender: FDA-Public Use
  Company Number: EM2006-0329

PATIENT
  Sex: 0

DRUGS (3)
  1. MACROLIN [Suspect]
     Indication: HEPATITIS C VIRUS
     Dosage: 3 MIU, QD, SUBCUTAN.
     Route: 058
  2. ROFERON-A [Suspect]
     Indication: HEPATITIS C VIRUS
     Dosage: 3 MIU
  3. RIBAVIRIN [Suspect]
     Indication: HEPATITIS C VIRUS
     Dosage: QD

REACTIONS (1)
  - LYMPHOMA [None]
